FAERS Safety Report 9910837 (Version 1)
Quarter: 2014Q1

REPORT INFORMATION
  Report Type: Spontaneous
  Country: JP (occurrence: JP)
  Receive Date: 20140219
  Receipt Date: 20140219
  Transmission Date: 20141002
  Serious: Yes (Other)
  Sender: FDA-Public Use
  Company Number: JP-TEVA-463205ISR

PATIENT
  Sex: 0

DRUGS (1)
  1. PRINK, INJ, 5 MCG1ML1AMPOULE [Suspect]

REACTIONS (1)
  - Glaucoma [Unknown]
